FAERS Safety Report 5169213-8 (Version None)
Quarter: 2006Q4

REPORT INFORMATION
  Report Type: 
  Country: None (occurrence: None)
  Receive Date: 20061201
  Receipt Date: 20061121
  Transmission Date: 20070319
  Serious: Yes (Death, Other)
  Sender: FDA-Public Use
  Company Number: 2006144490

PATIENT
  Age: 48 Year
  Sex: Male
  Weight: 118 kg

DRUGS (4)
  1. SERTRALINE [Suspect]
     Indication: DEPRESSION
     Dosage: (100 MG), ORAL
     Route: 048
     Dates: start: 20060314, end: 20060728
  2. ARIPIPRAZOLE (ARIPIPRAZOLE) [Concomitant]
  3. ATORVASTATIN CALCIUM [Concomitant]
  4. QUETIAPINE FUMARATE [Concomitant]

REACTIONS (3)
  - HEPATIC STEATOSIS [None]
  - PULMONARY CONGESTION [None]
  - PULMONARY OEDEMA [None]
